FAERS Safety Report 5748688-7 (Version None)
Quarter: 2008Q2

REPORT INFORMATION
  Report Type: 
  Country: None (occurrence: None)
  Receive Date: 20080521
  Receipt Date: 20080506
  Transmission Date: 20081010
  Serious: Yes (Other)
  Sender: FDA-Public Use
  Company Number: 2008010397

PATIENT
  Age: 36 Year
  Sex: Female

DRUGS (1)
  1. ROGAINE [Suspect]
     Dosage: TOPICAL
     Route: 061
     Dates: start: 20080403, end: 20080420

REACTIONS (10)
  - DERMATITIS CONTACT [None]
  - EAR PRURITUS [None]
  - FACE OEDEMA [None]
  - HEADACHE [None]
  - IMPAIRED WORK ABILITY [None]
  - PRURITUS [None]
  - RASH PUSTULAR [None]
  - SWELLING [None]
  - SWELLING FACE [None]
  - VISUAL DISTURBANCE [None]
